FAERS Safety Report 16397700 (Version 1)
Quarter: 2019Q2

REPORT INFORMATION
  Report Type: Spontaneous
  Country: US (occurrence: US)
  Receive Date: 20190606
  Receipt Date: 20190606
  Transmission Date: 20190711
  Serious: No
  Sender: FDA-Public Use
  Company Number: US-ASTRAZENECA-2019SE72313

PATIENT
  Sex: Male

DRUGS (2)
  1. BYDUREON BCISE [Suspect]
     Active Substance: EXENATIDE
     Indication: WEIGHT DECREASED
     Route: 058
     Dates: start: 20190508
  2. GLYPIZIDE [Concomitant]
     Active Substance: GLIPIZIDE
     Route: 048

REACTIONS (2)
  - Influenza [Unknown]
  - Blood glucose increased [Not Recovered/Not Resolved]

NARRATIVE: CASE EVENT DATE: 20190509
